FAERS Safety Report 9247443 (Version 1)
Quarter: 2013Q2

REPORT INFORMATION
  Report Type: Spontaneous
  Country: US (occurrence: US)
  Receive Date: 20130423
  Receipt Date: 20130423
  Transmission Date: 20140414
  Serious: No
  Sender: FDA-Public Use
  Company Number: US-MYLANLABS-2012S1021565

PATIENT
  Age: 87 Year
  Sex: Male

DRUGS (1)
  1. LORAZEPAM TABLETS, USP [Suspect]
     Indication: INSOMNIA
     Route: 048
     Dates: end: 20121005

REACTIONS (1)
  - Muscle twitching [Not Recovered/Not Resolved]
